FAERS Safety Report 15060622 (Version 1)
Quarter: 2018Q2

REPORT INFORMATION
  Report Type: Spontaneous
  Country: DK (occurrence: DK)
  Receive Date: 20180625
  Receipt Date: 20180625
  Transmission Date: 20180711
  Serious: Yes (Hospitalization, Other)
  Sender: FDA-Public Use
  Company Number: DK-OTSUKA-12777025

PATIENT
  Age: 38 Year
  Sex: Female

DRUGS (6)
  1. BUDESONIDE. [Concomitant]
     Active Substance: BUDESONIDE
     Dosage: INHALATION
  2. TRIATEC [Concomitant]
     Dosage: 5 MG, BID
  3. CODEINE? [Concomitant]
     Route: 065
  4. LEPONEX [Concomitant]
     Active Substance: CLOZAPINE
     Indication: SCHIZOPHRENIA
     Dosage: 300 MG, QD
     Dates: start: 20030923, end: 20040811
  5. CODEINE [Concomitant]
     Active Substance: CODEINE
     Dosage: 25 MG, TID
  6. ABILIFY [Suspect]
     Active Substance: ARIPIPRAZOLE
     Indication: SCHIZOPHRENIA
     Dosage: UNK
     Route: 048
     Dates: start: 20040727, end: 20040818

REACTIONS (10)
  - Fracture [Unknown]
  - Restlessness [Recovered/Resolved]
  - Liver function test abnormal [Recovered/Resolved]
  - Muscle rigidity [Recovered/Resolved]
  - Neuroleptic malignant syndrome [Unknown]
  - Liver function test increased [Unknown]
  - Blood creatine phosphokinase increased [Recovered/Resolved]
  - Generalised tonic-clonic seizure [Unknown]
  - Agitation [Recovered/Resolved]
  - Labile blood pressure [Recovered/Resolved]

NARRATIVE: CASE EVENT DATE: 20040818
